FAERS Safety Report 23169569 (Version 2)
Quarter: 2024Q1

REPORT INFORMATION
  Report Type: Spontaneous
  Country: US (occurrence: US)
  Receive Date: 20231110
  Receipt Date: 20240108
  Transmission Date: 20240409
  Serious: No
  Sender: FDA-Public Use
  Company Number: US-GSK-US2023AMR153362

PATIENT
  Sex: Female

DRUGS (1)
  1. FLUTICASONE PROPIONATE [Suspect]
     Active Substance: FLUTICASONE PROPIONATE
     Indication: Pneumonia
     Dosage: UNK; 10.6G/120 METERED; STEROID

REACTIONS (3)
  - Wrong technique in device usage process [Unknown]
  - Product label issue [Unknown]
  - Product prescribing issue [Unknown]
